FAERS Safety Report 23971710 (Version 2)
Quarter: 2024Q3

REPORT INFORMATION
  Report Type: Report from Study
  Country: US (occurrence: US)
  Receive Date: 20240613
  Receipt Date: 20240709
  Transmission Date: 20241016
  Serious: Yes (Hospitalization)
  Sender: GILEAD
  Company Number: US-GILEAD-2024-0676509

PATIENT
  Age: 43 Year
  Sex: Male

DRUGS (8)
  1. AZTREONAM LYSINE [Suspect]
     Active Substance: AZTREONAM LYSINE
     Indication: Cystic fibrosis
     Dosage: 1 DOSAGE FORM, TID
     Route: 055
     Dates: start: 20150810
  2. AZTREONAM LYSINE [Suspect]
     Active Substance: AZTREONAM LYSINE
     Indication: Cystic fibrosis lung
     Dosage: 1 DOSAGE FORM (75 MG), TID
     Route: 055
     Dates: start: 20150811
  3. ALBUTEROL SULFATE [Concomitant]
     Active Substance: ALBUTEROL SULFATE
  4. AZITHROMYCIN [Concomitant]
     Active Substance: AZITHROMYCIN
  5. FLUTICASONE [Concomitant]
     Active Substance: FLUTICASONE
  6. PULMOZYME [Concomitant]
     Active Substance: DORNASE ALFA
  7. SYMDEKO [Concomitant]
     Active Substance: IVACAFTOR\TEZACAFTOR
  8. VITAMIN D3 [Concomitant]
     Active Substance: CHOLECALCIFEROL

REACTIONS (4)
  - Respiratory disorder [Unknown]
  - Infection [Unknown]
  - Haemoptysis [Unknown]
  - Dyspnoea [Unknown]
